FAERS Safety Report 9233978 (Version 1)
Quarter: 2013Q2

REPORT INFORMATION
  Report Type: Spontaneous
  Country: US (occurrence: US)
  Receive Date: 20130416
  Receipt Date: 20130416
  Transmission Date: 20140414
  Serious: No
  Sender: FDA-Public Use
  Company Number: US-BANPHARM-20130544

PATIENT
  Age: 57 Year
  Sex: Female
  Weight: 58.06 kg

DRUGS (7)
  1. ALEVE LIQUID GELS 220MG [Suspect]
     Indication: PAIN
     Dosage: 2 DF, QD,
     Route: 048
     Dates: start: 201108, end: 201108
  2. SYNTHROID [Concomitant]
  3. ZYRTEC [Concomitant]
  4. WELLBUTRIN XL [Concomitant]
  5. CALCIUM [Concomitant]
  6. BIOTIN [Concomitant]
  7. PROBIOTICS [Concomitant]

REACTIONS (2)
  - Drug effect incomplete [Unknown]
  - Incorrect drug administration duration [Unknown]
